FAERS Safety Report 7773784-2 (Version None)
Quarter: 2011Q3

REPORT INFORMATION
  Report Type: 
  Country: None (occurrence: None)
  Receive Date: 20110923
  Receipt Date: 20110829
  Transmission Date: 20111222
  Serious: Yes (Hospitalization)
  Sender: FDA-Public Use
  Company Number: JP-BRISTOL-MYERS SQUIBB COMPANY-16072076

PATIENT
  Age: 64 Year
  Sex: Female

DRUGS (4)
  1. METFORMIN HCL [Concomitant]
     Dates: end: 20110610
  2. METFORMIN HCL [Suspect]
     Indication: DIABETES MELLITUS
     Dosage: 1500MG:10JUN-AUG2011(67D) DOSE REDUCED TO 750MG INTERRUPTED AND RESTARTED
     Route: 048
     Dates: start: 20110610
  3. SITAGLIPTIN PHOSPHATE [Concomitant]
     Dosage: GLACTIV
     Route: 048
     Dates: end: 20110610
  4. AMARYL [Concomitant]
     Route: 048

REACTIONS (1)
  - PAIN IN EXTREMITY [None]
